FAERS Safety Report 9120803 (Version 2)
Quarter: 2013Q1

REPORT INFORMATION
  Report Type: Spontaneous
  Country: CA (occurrence: CA)
  Receive Date: 20130226
  Receipt Date: 20130329
  Transmission Date: 20140127
  Serious: Yes (Hospitalization, Disabling)
  Sender: FDA-Public Use
  Company Number: CA-ROCHE-1195303

PATIENT
  Age: 90 Year
  Sex: Male

DRUGS (2)
  1. LUCENTIS [Suspect]
     Indication: DIABETIC RETINAL OEDEMA
     Route: 050
     Dates: start: 20121025
  2. LUCENTIS [Suspect]
     Route: 050
     Dates: start: 20130114

REACTIONS (1)
  - Pneumococcal infection [Recovered/Resolved with Sequelae]
